FAERS Safety Report 21667618 (Version 1)
Quarter: 2022Q4

REPORT INFORMATION
  Report Type: Report from Study
  Country: GB (occurrence: GB)
  Receive Date: 20221201
  Receipt Date: 20221201
  Transmission Date: 20230112
  Serious: Yes (Other)
  Sender: FDA-Public Use
  Company Number: GB-PFIZER INC-PV202200113224

PATIENT

DRUGS (2)
  1. GEMCITABINE HYDROCHLORIDE [Suspect]
     Active Substance: GEMCITABINE HYDROCHLORIDE
     Indication: Neoplasm malignant
     Dosage: 50 MG/M2, 28-DAY CYCLES ON DAYS 1, 8 AND 15
     Route: 042
  2. INVESTIGATIONAL PRODUCT [Concomitant]
     Active Substance: INVESTIGATIONAL PRODUCT
     Indication: Neoplasm malignant
     Dosage: 500 MG, 28-DAY CYCLES ON DAYS 2, 3, 9, 10, 16 AND 17
     Route: 048

REACTIONS (1)
  - Pneumonitis [Unknown]
